FAERS Safety Report 12378769 (Version 1)
Quarter: 2016Q2

REPORT INFORMATION
  Report Type: Spontaneous
  Country: US (occurrence: US)
  Receive Date: 20160517
  Receipt Date: 20160517
  Transmission Date: 20160815
  Serious: Yes (Other)
  Sender: FDA-Public Use
  Company Number: US-LUNDBECK-DKLU2013655

PATIENT
  Sex: Male

DRUGS (1)
  1. NORTHERA [Suspect]
     Active Substance: DROXIDOPA
     Indication: PRODUCT USED FOR UNKNOWN INDICATION
     Route: 065

REACTIONS (9)
  - Blood pressure increased [Unknown]
  - Speech disorder [Unknown]
  - Balance disorder [Unknown]
  - Fatigue [Unknown]
  - Fall [Unknown]
  - Condition aggravated [Unknown]
  - Confusional state [Unknown]
  - Mental impairment [Unknown]
  - Muscular weakness [Unknown]
